FAERS Safety Report 14323776 (Version 1)
Quarter: 2017Q4

REPORT INFORMATION
  Report Type: Spontaneous
  Country: NL (occurrence: NL)
  Receive Date: 20171226
  Receipt Date: 20171226
  Transmission Date: 20180321
  Serious: Yes (Hospitalization)
  Sender: FDA-Public Use
  Company Number: NL-009507513-1712NLD011477

PATIENT
  Age: 76 Year
  Sex: Female
  Weight: 59 kg

DRUGS (5)
  1. AUGMENTIN [Concomitant]
     Active Substance: AMOXICILLIN\CLAVULANATE POTASSIUM
     Indication: SEPSIS
     Route: 050
  2. METOPROLOL. [Concomitant]
     Active Substance: METOPROLOL
     Dosage: 1DD1
     Route: 050
  3. VITAMIN D [Concomitant]
     Active Substance: CHOLECALCIFEROL
     Dosage: 1DD2
     Route: 050
  4. ASCAL (ASPIRIN CALCIUM) [Concomitant]
     Active Substance: ASPIRIN CALCIUM
     Dosage: 1DD1
     Route: 050
  5. ALENDRONATE SODIUM. [Suspect]
     Active Substance: ALENDRONATE SODIUM
     Indication: OSTEOPOROSIS POSTMENOPAUSAL
     Dosage: 1X PER WEEK 1
     Route: 048
     Dates: start: 20020101, end: 20170309

REACTIONS (2)
  - Oesophagitis chemical [Recovered/Resolved with Sequelae]
  - Drug administration error [Recovered/Resolved with Sequelae]

NARRATIVE: CASE EVENT DATE: 20170308
